FAERS Safety Report 5044521-X (Version None)
Quarter: 2006Q3

REPORT INFORMATION
  Report Type: 
  Country: None (occurrence: None)
  Receive Date: 20060706
  Receipt Date: 20060530
  Transmission Date: 20061208
  Serious: Yes (Death)
  Sender: FDA-Public Use
  Company Number: US-BRISTOL-MYERS SQUIBB COMPANY-13393525

PATIENT
  Age: 52 Year
  Sex: Male

DRUGS (4)
  1. GLUCOPHAGE XR [Suspect]
     Indication: DIABETES MELLITUS NON-INSULIN-DEPENDENT
     Route: 048
     Dates: start: 20010101, end: 20060501
  2. NEURONTIN [Concomitant]
  3. KLONOPIN [Concomitant]
  4. ELAVIL [Concomitant]

REACTIONS (1)
  - OVERDOSE [None]
